FAERS Safety Report 8086118-3 (Version None)
Quarter: 2012Q1

REPORT INFORMATION
  Report Type: 
  Country: None (occurrence: None)
  Receive Date: 20120128
  Receipt Date: 20110414
  Transmission Date: 20120608
  Serious: No
  Sender: FDA-Public Use
  Company Number: US-ABBOTT-11P-163-0718984-00

PATIENT
  Age: 34 Year
  Sex: Female

DRUGS (4)
  1. HUMIRA [Suspect]
     Indication: PSORIASIS
     Dates: start: 20101201, end: 20110401
  2. HYZAAR [Concomitant]
     Indication: HYPERTENSION
     Dosage: 100/25, ONCE DAILY
  3. MAXALT [Concomitant]
     Indication: MIGRAINE
  4. LAMICTAL [Concomitant]
     Indication: CONVULSION

REACTIONS (1)
  - DRUG INEFFECTIVE [None]
